FAERS Safety Report 7844651-0 (Version None)
Quarter: 2011Q4

REPORT INFORMATION
  Report Type: 
  Country: None (occurrence: None)
  Receive Date: 20111025
  Receipt Date: 20111013
  Transmission Date: 20120403
  Serious: Yes (Other)
  Sender: FDA-Public Use
  Company Number: CA-JNJFOC-20111008900

PATIENT
  Sex: Female
  Weight: 54.9 kg

DRUGS (8)
  1. CODEINE SULFATE [Concomitant]
  2. PLAVIX [Concomitant]
  3. ISOSORBIDE DINITRATE [Concomitant]
  4. NITROGLYCERIN [Concomitant]
  5. EFFEXOR [Concomitant]
  6. PERINDOPRIL ERBUMINE [Concomitant]
  7. REMICADE [Suspect]
     Indication: CROHN'S DISEASE
     Dosage: 40 INFUSIONS
     Route: 042
  8. ASPIRIN [Concomitant]

REACTIONS (2)
  - CHEST PAIN [None]
  - NAUSEA [None]
